FAERS Safety Report 9028672 (Version 2)
Quarter: 2013Q4

REPORT INFORMATION
  Report Type: Report from Study
  Country: AR (occurrence: AR)
  Receive Date: 20130124
  Receipt Date: 20131218
  Transmission Date: 20140711
  Serious: Yes (Hospitalization)
  Sender: FDA-Public Use
  Company Number: PHHY2013AR006204

PATIENT
  Sex: Female

DRUGS (2)
  1. DIOVAN [Suspect]
     Indication: HYPERTENSION
     Dosage: 1.5 DF (160 MG) DAILY
     Route: 048
     Dates: start: 2012
  2. LUCENTIS [Concomitant]
     Indication: VISUAL IMPAIRMENT
     Dosage: UNK UKN, UNK
     Dates: start: 201301

REACTIONS (5)
  - Confusional state [Unknown]
  - Fall [Recovered/Resolved]
  - Face injury [Recovered/Resolved]
  - Swelling face [Recovered/Resolved]
  - Wrong technique in drug usage process [Unknown]
